FAERS Safety Report 5143971-0 (Version None)
Quarter: 2006Q4

REPORT INFORMATION
  Report Type: 
  Country: None (occurrence: None)
  Receive Date: 20061030
  Receipt Date: 20061016
  Transmission Date: 20070319
  Serious: No
  Sender: FDA-Public Use
  Company Number: US200608000199

PATIENT
  Age: 70 Year
  Sex: Female
  Weight: 48.1 kg

DRUGS (5)
  1. FORTEO [Suspect]
     Indication: OSTEOPOROSIS
     Dosage: 3/W
     Dates: start: 20060701
  2. FORTEO [Concomitant]
  3. VALIUM/NET/(DIAZEPAM) [Concomitant]
  4. CALCIUM (CALCIUM) [Concomitant]
  5. BENADRYL [Concomitant]

REACTIONS (9)
  - BLOOD PRESSURE DECREASED [None]
  - DIZZINESS [None]
  - HEADACHE [None]
  - HEART RATE INCREASED [None]
  - MUSCLE SPASMS [None]
  - NAUSEA [None]
  - NECK PAIN [None]
  - PERSONALITY CHANGE [None]
  - PHARMACEUTICAL PRODUCT COMPLAINT [None]
